FAERS Safety Report 4360813-1 (Version None)
Quarter: 2004Q2

REPORT INFORMATION
  Report Type: 
  Country: None (occurrence: None)
  Receive Date: 20040519
  Receipt Date: 20040519
  Transmission Date: 20050107
  Serious: Yes (Other)
  Sender: FDA-Public Use
  Company Number: None

PATIENT
  Age: 36 Year
  Sex: Male
  Weight: 58.9676 kg

DRUGS (3)
  1. REGLAN [Suspect]
     Indication: NEPHROLITHIASIS
     Dosage: 10 MG IV
     Route: 042
     Dates: start: 20040505
  2. VERSED [Concomitant]
  3. ZOFRAN [Concomitant]

REACTIONS (4)
  - AGITATION [None]
  - FEELING HOT [None]
  - PANIC ATTACK [None]
  - RESTLESSNESS [None]
